FAERS Safety Report 19944086 (Version 3)
Quarter: 2022Q2

REPORT INFORMATION
  Report Type: Spontaneous
  Country: US (occurrence: US)
  Receive Date: 20211011
  Receipt Date: 20220411
  Transmission Date: 20220721
  Serious: No
  Sender: FDA-Public Use
  Company Number: US-BRISTOL-MYERS SQUIBB COMPANY-BMS-2021-104532

PATIENT
  Age: 56 Year
  Sex: Female

DRUGS (4)
  1. ORENCIA [Suspect]
     Active Substance: ABATACEPT
     Indication: Rheumatoid arthritis
     Route: 058
     Dates: start: 202108
  2. ORENCIA [Suspect]
     Active Substance: ABATACEPT
     Indication: Renal transplant
     Route: 058
     Dates: start: 20210902
  3. ORENCIA [Suspect]
     Active Substance: ABATACEPT
     Indication: End stage renal disease
  4. ORENCIA [Suspect]
     Active Substance: ABATACEPT
     Indication: Hyperparathyroidism secondary

REACTIONS (2)
  - Joint swelling [Unknown]
  - Arthralgia [Unknown]

NARRATIVE: CASE EVENT DATE: 20210901
